FAERS Safety Report 16067172 (Version 2)
Quarter: 2019Q2

REPORT INFORMATION
  Report Type: Spontaneous
  Country: US (occurrence: US)
  Receive Date: 20190313
  Receipt Date: 20190613
  Transmission Date: 20190711
  Serious: Yes (Other)
  Sender: FDA-Public Use
  Company Number: US-SA-2019SA067594

PATIENT
  Sex: Female

DRUGS (1)
  1. DUPIXENT [Suspect]
     Active Substance: DUPILUMAB
     Indication: DERMATITIS ATOPIC
     Dosage: 300 MG, QOW
     Route: 058
     Dates: start: 20180731

REACTIONS (6)
  - Atrial fibrillation [Unknown]
  - Hypotension [Unknown]
  - Dizziness [Unknown]
  - Vaginal infection [Unknown]
  - Staphylococcal infection [Unknown]
  - Therapeutic response unexpected [Unknown]
